FAERS Safety Report 17364374 (Version 4)
Quarter: 2021Q3

REPORT INFORMATION
  Report Type: Other
  Country: US (occurrence: US)
  Receive Date: 20200204
  Receipt Date: 20210722
  Transmission Date: 20211014
  Serious: Yes (Hospitalization)
  Sender: FDA-Public Use
  Company Number: US-ROCHE-2242684

PATIENT
  Age: 56 Year
  Sex: Female
  Weight: 69.92 kg

DRUGS (4)
  1. OCREVUS [Suspect]
     Active Substance: OCRELIZUMAB
     Indication: MULTIPLE SCLEROSIS
  2. OCREVUS [Suspect]
     Active Substance: OCRELIZUMAB
     Indication: CHRONIC INFLAMMATORY DEMYELINATING POLYRADICULONEUROPATHY
  3. OCREVUS [Suspect]
     Active Substance: OCRELIZUMAB
     Indication: RELAPSING-REMITTING MULTIPLE SCLEROSIS
     Dosage: ONGOING: YES?DATE OF TREATMENT: 27/JUL/2018, 19/JAN/2019, 19/JUL/2019, 17/JAN/2020, 21/JAN/2020
     Route: 042
     Dates: start: 20180713
  4. OCREVUS [Suspect]
     Active Substance: OCRELIZUMAB
     Indication: MULTIFOCAL MOTOR NEUROPATHY
     Dosage: ONGOING: YES
     Route: 042
     Dates: start: 202007

REACTIONS (12)
  - Neutrophil count increased [Recovered/Resolved]
  - Weight increased [Recovered/Resolved]
  - White blood cell count increased [Recovered/Resolved]
  - Amnesia [Not Recovered/Not Resolved]
  - Head discomfort [Unknown]
  - Dizziness [Recovered/Resolved]
  - Infection [Recovered/Resolved]
  - Pyrexia [Recovered/Resolved]
  - Blood lactic acid increased [Recovered/Resolved]
  - Headache [Recovered/Resolved]
  - Fall [Unknown]
  - CSF oligoclonal band absent [Not Recovered/Not Resolved]

NARRATIVE: CASE EVENT DATE: 201906
